FAERS Safety Report 5067655-2 (Version None)
Quarter: 2006Q3

REPORT INFORMATION
  Report Type: 
  Country: None (occurrence: None)
  Receive Date: 20060731
  Receipt Date: 20060724
  Transmission Date: 20061208
  Serious: Yes (Life-Threatening, Hospitalization)
  Sender: FDA-Public Use
  Company Number: STA-AE-06-MTX-007

PATIENT
  Age: 59 Year
  Sex: Male

DRUGS (3)
  1. RHEUMATREX [Suspect]
     Indication: ARTHRITIS
     Dosage: 10 MG -1XW - ORAL
     Route: 048
     Dates: start: 20060601, end: 20060720
  2. ATENOLOL [Concomitant]
  3. SIMVASTATIN [Concomitant]

REACTIONS (3)
  - APPARENT LIFE THREATENING EVENT [None]
  - PULMONARY EMBOLISM [None]
  - SYNCOPE [None]
